FAERS Safety Report 13040995 (Version 1)
Quarter: 2016Q4

REPORT INFORMATION
  Report Type: Spontaneous
  Country: US (occurrence: US)
  Receive Date: 20161219
  Receipt Date: 20161219
  Transmission Date: 20170207
  Serious: Yes (Hospitalization, Other)
  Sender: FDA-Public Use
  Company Number: US-TEVA-721202USA

PATIENT
  Age: 15 Year
  Sex: Male

DRUGS (3)
  1. CALCIUM CARBONATE. [Suspect]
     Active Substance: CALCIUM CARBONATE
     Dosage: .75 MICROGRAM DAILY;
     Route: 065
  2. PAMIDRONIC ACID [Suspect]
     Active Substance: PAMIDRONIC ACID
     Indication: HYPERCALCAEMIA
     Route: 065
  3. CALCITRIOL. [Suspect]
     Active Substance: CALCITRIOL
     Dosage: 3G ELEMENTAL CALCIUM/DAY IN DIVIDED DOSES
     Route: 065

REACTIONS (2)
  - Milk-alkali syndrome [Recovering/Resolving]
  - Blood phosphorus decreased [Unknown]
